FAERS Safety Report 8250481-0 (Version None)
Quarter: 2012Q2

REPORT INFORMATION
  Report Type: 
  Country: None (occurrence: None)
  Receive Date: 20120402
  Receipt Date: 20120402
  Transmission Date: 20120825
  Serious: Yes (Hospitalization)
  Sender: FDA-Public Use
  Company Number: None

PATIENT
  Age: 73 Year
  Sex: Female
  Weight: 61.234 kg

DRUGS (1)
  1. SULFASALAZINE [Suspect]
     Indication: COLITIS
     Dosage: 500MG
     Route: 048
     Dates: start: 20120320, end: 20120328

REACTIONS (6)
  - DRUG HYPERSENSITIVITY [None]
  - HEADACHE [None]
  - NAUSEA [None]
  - VOMITING [None]
  - PAIN IN EXTREMITY [None]
  - RASH [None]
